FAERS Safety Report 4751168-9 (Version None)
Quarter: 2005Q3

REPORT INFORMATION
  Report Type: 
  Country: None (occurrence: None)
  Receive Date: 20050822
  Receipt Date: 20050822
  Transmission Date: 20060218
  Serious: Yes (Other)
  Sender: FDA-Public Use
  Company Number: None

PATIENT
  Sex: Male
  Weight: 136.0791 kg

DRUGS (7)
  1. CRESTOR [Suspect]
     Indication: HYPERCHOLESTEROLAEMIA
     Dosage: 10 MG PO QDAY
     Route: 048
  2. BENICAR HCT [Concomitant]
  3. ACTOS [Concomitant]
  4. AMARYL [Concomitant]
  5. LOPRESSOR [Concomitant]
  6. LEVITRA [Concomitant]
  7. ALLEGRA [Concomitant]

REACTIONS (1)
  - MUSCULOSKELETAL STIFFNESS [None]
